FAERS Safety Report 25001546 (Version 1)
Quarter: 2025Q1

REPORT INFORMATION
  Report Type: Report from Study
  Country: KR (occurrence: KR)
  Receive Date: 20250223
  Receipt Date: 20250223
  Transmission Date: 20250409
  Serious: Yes (Death, Other)
  Sender: JOHNSON AND JOHNSON
  Company Number: KR-JNJFOC-20250246558

PATIENT
  Sex: Female

DRUGS (4)
  1. REMICADE [Suspect]
     Active Substance: INFLIXIMAB
     Indication: Rheumatoid arthritis
     Route: 041
  2. GOLIMUMAB [Suspect]
     Active Substance: GOLIMUMAB
     Indication: Rheumatoid arthritis
     Route: 058
  3. ETANERCEPT [Suspect]
     Active Substance: ETANERCEPT
     Indication: Rheumatoid arthritis
  4. ADALIMUMAB [Suspect]
     Active Substance: ADALIMUMAB
     Indication: Rheumatoid arthritis

REACTIONS (25)
  - Infection [Fatal]
  - Myocardial infarction [Unknown]
  - Atrial fibrillation [Unknown]
  - Neoplasm malignant [Unknown]
  - Herpes zoster [Unknown]
  - Palpitations [Unknown]
  - Gastrointestinal disorder [Unknown]
  - Skin disorder [Unknown]
  - Administration site reaction [Unknown]
  - Lymphatic disorder [Unknown]
  - Endocrine disorder [Unknown]
  - Hepatobiliary disease [Unknown]
  - Mental disorder [Unknown]
  - Renal disorder [Unknown]
  - Blood disorder [Unknown]
  - Post procedural complication [Unknown]
  - Metabolic disorder [Unknown]
  - Musculoskeletal disorder [Unknown]
  - Nervous system disorder [Unknown]
  - Respiratory disorder [Unknown]
  - Angiopathy [Unknown]
  - Ear disorder [Unknown]
  - Eye disorder [Unknown]
  - Reproductive system disorder prophylaxis [Unknown]
  - Drug ineffective [Unknown]
